FAERS Safety Report 6779129-9 (Version None)
Quarter: 2010Q2

REPORT INFORMATION
  Report Type: 
  Country: None (occurrence: None)
  Receive Date: 20100618
  Receipt Date: 20100607
  Transmission Date: 20101027
  Serious: Yes (Death)
  Sender: FDA-Public Use
  Company Number: US-MYLANLABS-2010S1008820

PATIENT
  Age: 66 Year
  Sex: Male
  Weight: 99.79 kg

DRUGS (9)
  1. IPRATROPIUM BROMIDE AND ALBUTEROL SULFATE [Suspect]
     Indication: CHRONIC OBSTRUCTIVE PULMONARY DISEASE
     Route: 055
     Dates: start: 20090903, end: 20100116
  2. IPRATROPIUM BROMIDE AND ALBUTEROL SULFATE [Suspect]
     Route: 055
     Dates: start: 20090903, end: 20100116
  3. PRINIVIL PLUS [Concomitant]
     Dosage: 20MG/12.5MG
     Dates: end: 20100116
  4. DEMADEX [Concomitant]
  5. INDOCIN [Concomitant]
  6. MUCINEX [Concomitant]
  7. BENADRYL [Concomitant]
  8. LANTUS /01483501/ [Concomitant]
     Dosage: SLIDING SCALE
  9. HUMALOG [Concomitant]
     Dosage: GIVEN IF BLOOD SUGAR }130

REACTIONS (3)
  - CARDIAC ARREST [None]
  - HYPERSENSITIVITY [None]
  - HYPOXIA [None]
